FAERS Safety Report 17867185 (Version 1)
Quarter: 2020Q2

REPORT INFORMATION
  Report Type: Spontaneous
  Country: CO (occurrence: CO)
  Receive Date: 20200605
  Receipt Date: 20200605
  Transmission Date: 20200714
  Serious: Yes (Other)
  Sender: FDA-Public Use
  Company Number: CO-BAYER-2020-100329

PATIENT
  Age: 13 Year
  Sex: Male

DRUGS (4)
  1. KOGENATE FS [Suspect]
     Active Substance: ANTIHEMOPHILIC FACTOR, HUMAN RECOMBINANT
     Indication: FACTOR VIII DEFICIENCY
     Dosage: 2000 IU, FIRST TREATMENT DOSE
     Route: 042
     Dates: start: 20200520, end: 20200520
  2. KOGENATE FS [Suspect]
     Active Substance: ANTIHEMOPHILIC FACTOR, HUMAN RECOMBINANT
     Indication: FACTOR VIII DEFICIENCY
     Dosage: 1500 IU
     Route: 042
  3. KOGENATE FS [Suspect]
     Active Substance: ANTIHEMOPHILIC FACTOR, HUMAN RECOMBINANT
     Indication: FACTOR VIII DEFICIENCY
     Dosage: 2000 IU, SECOND TREATMENT DOSE
     Route: 042
     Dates: start: 20200520, end: 20200520
  4. KOGENATE FS [Suspect]
     Active Substance: ANTIHEMOPHILIC FACTOR, HUMAN RECOMBINANT
     Indication: FACTOR VIII DEFICIENCY
     Dosage: 1500 IU, THIRD TREATMENT DOSE
     Route: 042
     Dates: start: 20200521, end: 20200521

REACTIONS (4)
  - Traumatic haematoma [Unknown]
  - Haemarthrosis [Unknown]
  - Incorrect dose administered [None]
  - Product selection error [None]

NARRATIVE: CASE EVENT DATE: 20200520
